FAERS Safety Report 12832610 (Version 1)
Quarter: 2016Q4

REPORT INFORMATION
  Report Type: Spontaneous
  Country: US (occurrence: US)
  Receive Date: 20161010
  Receipt Date: 20161010
  Transmission Date: 20170207
  Serious: No
  Sender: FDA-Public Use
  Company Number: US-JAZZ-2016-US-013407

PATIENT
  Age: 47 Year
  Sex: Female

DRUGS (28)
  1. XYREM [Suspect]
     Active Substance: SODIUM OXYBATE
     Indication: NARCOLEPSY
     Dosage: 2.25 G, BID
     Route: 048
     Dates: start: 200710, end: 200711
  2. LIDODERM [Concomitant]
     Active Substance: LIDOCAINE
  3. ZOVIRAX [Concomitant]
     Active Substance: ACYCLOVIR
  4. SINGULAIR [Concomitant]
     Active Substance: MONTELUKAST SODIUM
  5. FIORICET [Suspect]
     Active Substance: ACETAMINOPHEN\BUTALBITAL\CAFFEINE
     Indication: PRODUCT USED FOR UNKNOWN INDICATION
     Dosage: UNK
     Dates: start: 20160627
  6. FLECTOR [Concomitant]
     Active Substance: DICLOFENAC EPOLAMINE
  7. PROPRANOLOL [Concomitant]
     Active Substance: PROPRANOLOL\PROPRANOLOL HYDROCHLORIDE
  8. MAGNESIUM OXIDE. [Concomitant]
     Active Substance: MAGNESIUM OXIDE
  9. MULTIVITAMINS [Concomitant]
     Active Substance: VITAMINS
  10. POTASSIUM CL [Concomitant]
     Active Substance: POTASSIUM CHLORIDE
  11. BIOTIN [Concomitant]
     Active Substance: BIOTIN
  12. CALCIUM [Concomitant]
     Active Substance: CALCIUM
  13. XYREM [Suspect]
     Active Substance: SODIUM OXYBATE
     Dosage: DOSE ADJUSTMENTS
     Route: 048
     Dates: start: 200711, end: 201112
  14. LYRICA [Concomitant]
     Active Substance: PREGABALIN
  15. VITAMIN B2 [Concomitant]
     Active Substance: RIBOFLAVIN
  16. XYREM [Suspect]
     Active Substance: SODIUM OXYBATE
     Dosage: 4.5 G, BID
     Route: 048
     Dates: start: 201112
  17. HYDROCHLOROTHIAZIDE. [Concomitant]
     Active Substance: HYDROCHLOROTHIAZIDE
  18. MAXZIDE [Concomitant]
     Active Substance: HYDROCHLOROTHIAZIDE\TRIAMTERENE
  19. VITAMIN D [Concomitant]
     Active Substance: CHOLECALCIFEROL
  20. ULTRAM [Concomitant]
     Active Substance: TRAMADOL HYDROCHLORIDE
  21. FIBER [Concomitant]
     Active Substance: PSYLLIUM HUSK
  22. MOBIC [Concomitant]
     Active Substance: MELOXICAM
  23. NUVARING [Concomitant]
     Active Substance: ETHINYL ESTRADIOL\ETONOGESTREL
  24. ASPIRIN. [Concomitant]
     Active Substance: ASPIRIN
  25. ZYRTEC [Concomitant]
     Active Substance: CETIRIZINE HYDROCHLORIDE
  26. DEPAKOTE [Concomitant]
     Active Substance: DIVALPROEX SODIUM
  27. NUVIGIL [Concomitant]
     Active Substance: ARMODAFINIL
  28. TRAZODONE [Concomitant]
     Active Substance: TRAZODONE HYDROCHLORIDE

REACTIONS (2)
  - Unevaluable event [Unknown]
  - Poor quality sleep [Unknown]

NARRATIVE: CASE EVENT DATE: 201606
